FAERS Safety Report 9633194 (Version 6)
Quarter: 2013Q4

REPORT INFORMATION
  Report Type: Report from Study
  Country: CA (occurrence: CA)
  Receive Date: 20131020
  Receipt Date: 20131202
  Transmission Date: 20140711
  Serious: Yes (Other)
  Sender: FDA-Public Use
  Company Number: PHHY2013CA116994

PATIENT
  Age: 52 Year
  Sex: Female

DRUGS (4)
  1. CLOZARIL [Suspect]
     Indication: SCHIZOPHRENIA
     Dosage: 100 MG, QHS
     Dates: start: 20130826, end: 20131017
  2. HALOPERIDOL [Concomitant]
     Dosage: UNK UKN, UNK
  3. SEROQUEL [Concomitant]
     Dosage: UNK UKN, UNK
  4. LATUDA [Concomitant]
     Dosage: UNK UKN, UNK

REACTIONS (2)
  - White blood cell count decreased [Recovered/Resolved]
  - Neutrophil count decreased [Recovered/Resolved]
